FAERS Safety Report 7144969-3 (Version None)
Quarter: 2010Q4

REPORT INFORMATION
  Report Type: 
  Country: None (occurrence: None)
  Receive Date: 20101123
  Receipt Date: 20101020
  Transmission Date: 20110411
  Serious: No
  Sender: FDA-Public Use
  Company Number: 020715

PATIENT
  Sex: Female
  Weight: 83.9 kg

DRUGS (3)
  1. CIMZIA [Suspect]
     Indication: CROHN'S DISEASE
     Dosage: 200 MG 1X/2 WEEKS SUBCUTANEOUS
     Route: 058
     Dates: start: 20091029
  2. AZATHIOPRINE [Concomitant]
  3. ALBUTEROL SULFATE [Concomitant]

REACTIONS (1)
  - PROCTALGIA [None]
